FAERS Safety Report 9384252 (Version 1)
Quarter: 2013Q3

REPORT INFORMATION
  Report Type: Spontaneous
  Country: US (occurrence: None)
  Receive Date: 20130702
  Receipt Date: 20130702
  Transmission Date: 20140515
  Serious: Yes (Other)
  Sender: FDA-Public Use
  Company Number: None

PATIENT
  Age: 67 Year
  Sex: Female
  Weight: 78.47 kg

DRUGS (3)
  1. LEVAQUIN [Suspect]
     Indication: BRONCHITIS
     Route: 048
     Dates: start: 20130520, end: 20130526
  2. LEVOFLOXACIN [Concomitant]
  3. CHERATUSSIN AC LIQUID [Concomitant]

REACTIONS (2)
  - Rotator cuff syndrome [None]
  - Tendonitis [None]
